FAERS Safety Report 19074253 (Version 1)
Quarter: 2021Q1

REPORT INFORMATION
  Report Type: Spontaneous
  Country: US (occurrence: US)
  Receive Date: 20210330
  Receipt Date: 20210330
  Transmission Date: 20210420
  Serious: No
  Sender: FDA-Public Use
  Company Number: US-JNJFOC-20210324639

PATIENT
  Age: 5 Decade
  Sex: Male

DRUGS (1)
  1. MENS ROGAINE EXTRA STRENGTH [Suspect]
     Active Substance: MINOXIDIL
     Indication: ALOPECIA
     Dosage: LAST ADMINISTERED ON 08/MAR/2021
     Route: 061
     Dates: start: 20210101

REACTIONS (3)
  - Underdose [Unknown]
  - Product administered at inappropriate site [Unknown]
  - Alopecia [Unknown]

NARRATIVE: CASE EVENT DATE: 2021
